FAERS Safety Report 9413386 (Version 1)
Quarter: 2013Q3

REPORT INFORMATION
  Report Type: Spontaneous
  Country: SE (occurrence: None)
  Receive Date: 20130717
  Receipt Date: 20130717
  Transmission Date: 20140515
  Serious: Yes (Other)
  Sender: FDA-Public Use
  Company Number: SYM-2013-06004

PATIENT
  Age: 29 Year
  Sex: Female

DRUGS (2)
  1. VOXRA [Suspect]
     Indication: DEPRESSION
     Route: 048
     Dates: start: 20130207, end: 20130301
  2. THYROXINE SODIUM [Concomitant]

REACTIONS (1)
  - Night sweats [None]
